FAERS Safety Report 21026558 (Version 1)
Quarter: 2022Q2

REPORT INFORMATION
  Report Type: Spontaneous
  Country: US (occurrence: US)
  Receive Date: 20220630
  Receipt Date: 20220630
  Transmission Date: 20220720
  Serious: No
  Sender: FDA-Public Use
  Company Number: US-BEH-2022146853

PATIENT
  Age: 7 Year
  Sex: Female

DRUGS (2)
  1. HIZENTRA [Suspect]
     Active Substance: HUMAN IMMUNOGLOBULIN G
     Indication: Immunodeficiency
     Dosage: 12 GRAM, QOW
     Route: 058
     Dates: start: 20220325
  2. HIZENTRA [Suspect]
     Active Substance: HUMAN IMMUNOGLOBULIN G
     Dosage: UNK
     Route: 065
     Dates: start: 20220619

REACTIONS (4)
  - Headache [Not Recovered/Not Resolved]
  - Migraine [Unknown]
  - Infusion site swelling [Unknown]
  - Infusion site irritation [Unknown]

NARRATIVE: CASE EVENT DATE: 20220620
